FAERS Safety Report 7063427-8 (Version None)
Quarter: 2010Q4

REPORT INFORMATION
  Report Type: 
  Country: None (occurrence: None)
  Receive Date: 20101026
  Receipt Date: 20100104
  Transmission Date: 20110411
  Serious: No
  Sender: FDA-Public Use
  Company Number: US-ABBOTT-10P-163-0617608-00

PATIENT
  Sex: Female

DRUGS (1)
  1. LUPRON DEPOT [Suspect]
     Indication: UTERINE LEIOMYOMA
     Route: 058
     Dates: start: 20090801, end: 20090901

REACTIONS (5)
  - BONE PAIN [None]
  - DIZZINESS [None]
  - MUSCULAR WEAKNESS [None]
  - PARAESTHESIA [None]
  - VISION BLURRED [None]
